FAERS Safety Report 7643673-2 (Version None)
Quarter: 2011Q3

REPORT INFORMATION
  Report Type: 
  Country: None (occurrence: None)
  Receive Date: 20110729
  Receipt Date: 20110721
  Transmission Date: 20111222
  Serious: Yes (Other)
  Sender: FDA-Public Use
  Company Number: PHHY2011HU65768

PATIENT
  Age: 57 Year
  Sex: Male

DRUGS (4)
  1. CALCIUM-SANDOZ [Concomitant]
     Dosage: 500 MG, DAILY
  2. SUTENT [Suspect]
     Indication: RENAL CANCER STAGE I
     Dosage: 50 MG, UNK
     Dates: start: 20100315
  3. ZOMETA [Suspect]
     Indication: NEOPLASM MALIGNANT
     Dosage: 4 MG, QMO
     Dates: start: 20100310, end: 20110626
  4. ALPHA D3 [Concomitant]
     Dosage: 1 G, DAILY

REACTIONS (2)
  - OSTEONECROSIS OF JAW [None]
  - PAIN IN JAW [None]
